FAERS Safety Report 15877412 (Version 3)
Quarter: 2019Q1

REPORT INFORMATION
  Report Type: Report from Study
  Country: None (occurrence: NL)
  Receive Date: 20190128
  Receipt Date: 20190226
  Transmission Date: 20190417
  Serious: Yes (Hospitalization)
  Sender: FDA-Public Use
  Company Number: NL-ABBVIE-19K-114-2634662-00

PATIENT
  Age: 51 Year
  Sex: Male

DRUGS (5)
  1. HUMIRA [Suspect]
     Active Substance: ADALIMUMAB
     Indication: PSORIATIC ARTHROPATHY
     Route: 058
     Dates: start: 201811, end: 201901
  2. METHOTREXATE. [Concomitant]
     Active Substance: METHOTREXATE
     Indication: LATENT TUBERCULOSIS
     Route: 058
     Dates: start: 201108
  3. METHOTREXATE. [Concomitant]
     Active Substance: METHOTREXATE
     Indication: PSORIATIC ARTHROPATHY
  4. PREDNISONE. [Concomitant]
     Active Substance: PREDNISONE
     Indication: PRODUCT USED FOR UNKNOWN INDICATION
     Dates: start: 20190119
  5. RIFAMPICIN AND ISONIAZID [Concomitant]
     Indication: LATENT TUBERCULOSIS
     Dosage: 300/150
     Route: 048
     Dates: start: 20181019, end: 20190219

REACTIONS (7)
  - Hypertension [Not Recovered/Not Resolved]
  - Asthma [Not Recovered/Not Resolved]
  - Erythema [Not Recovered/Not Resolved]
  - Malaise [Unknown]
  - Bronchiolitis [Unknown]
  - Oxygen saturation decreased [Not Recovered/Not Resolved]
  - Small airways disease [Recovering/Resolving]

NARRATIVE: CASE EVENT DATE: 20190117
